FAERS Safety Report 5332960-9 (Version None)
Quarter: 2007Q2

REPORT INFORMATION
  Report Type: 
  Country: None (occurrence: None)
  Receive Date: 20070306
  Receipt Date: 20060131
  Transmission Date: 20071010
  Serious: Yes (Hospitalization)
  Sender: FDA-Public Use
  Company Number: A03200600580

PATIENT

DRUGS (11)
  1. PLAVIX [Suspect]
     Indication: CORONARY ARTERY DISEASE
     Dosage: 75 MG QD - ORAL
     Route: 048
     Dates: start: 20050902, end: 20050906
  2. ASPIRIN [Suspect]
     Indication: CORONARY ARTERY DISEASE
     Dosage: CORONARY ARTERY DISEASE
  3. FUROSEMIDE [Concomitant]
  4. LEVOTHYROXINE SODIUM [Concomitant]
  5. SODIUM BICARBONATE [Concomitant]
  6. METOPROLOL SUCCINATE [Concomitant]
  7. ISOSORBIDE DINITRATE [Concomitant]
  8. ISOPHANE INSULIN [Concomitant]
  9. AMLODIPINE BESYLATE [Concomitant]
  10. FENOFIBRATE [Concomitant]
  11. BIVALIRUDIN [Concomitant]

REACTIONS (2)
  - HAEMOGLOBIN DECREASED [None]
  - LOWER GASTROINTESTINAL HAEMORRHAGE [None]
